FAERS Safety Report 14077970 (Version 2)
Quarter: 2018Q1

REPORT INFORMATION
  Report Type: Spontaneous
  Country: US (occurrence: US)
  Receive Date: 20171012
  Receipt Date: 20180119
  Transmission Date: 20180508
  Serious: No
  Sender: FDA-Public Use
  Company Number: US-MYLANLABS-2017M1014521

PATIENT
  Age: 74 Year
  Sex: Female
  Weight: 72.56 kg

DRUGS (1)
  1. CETIRIZINE HCL TABLETS, USP [Suspect]
     Active Substance: CETIRIZINE HYDROCHLORIDE
     Indication: HYPERSENSITIVITY
     Dosage: 10 MG, BID
     Route: 048
     Dates: start: 2016, end: 201702

REACTIONS (2)
  - Pruritus [Not Recovered/Not Resolved]
  - Product prescribing issue [Not Recovered/Not Resolved]

NARRATIVE: CASE EVENT DATE: 201702
